FAERS Safety Report 5801143-8 (Version None)
Quarter: 2008Q3

REPORT INFORMATION
  Report Type: 
  Country: None (occurrence: None)
  Receive Date: 20080707
  Receipt Date: 20080624
  Transmission Date: 20090109
  Serious: Yes (Hospitalization, Other)
  Sender: FDA-Public Use
  Company Number: PHHY2008JP08649

PATIENT
  Sex: Male

DRUGS (10)
  1. LAMISIL [Suspect]
     Dosage: 125 MG/DAY
     Dates: start: 20080428, end: 20080507
  2. CAPTOPRIL [Concomitant]
     Dosage: UNK
     Route: 048
  3. CLINORIL [Concomitant]
     Dosage: UNK
     Route: 048
  4. NIZATIDINE [Concomitant]
     Dosage: UNK
     Route: 048
  5. CORINAEL [Concomitant]
     Dosage: UNK
     Route: 048
  6. ALINAMIN F [Concomitant]
     Route: 048
  7. HIBON [Concomitant]
     Route: 048
  8. PYDOXAL [Concomitant]
     Route: 048
  9. VITANEURIN [Concomitant]
     Route: 048
  10. PREDNISOLONE [Concomitant]
     Dosage: 5MG
     Route: 048

REACTIONS (9)
  - BLOOD CREATINE INCREASED [None]
  - BLOOD UREA INCREASED [None]
  - C-REACTIVE PROTEIN INCREASED [None]
  - DEHYDRATION [None]
  - DERMATITIS BULLOUS [None]
  - DYSGEUSIA [None]
  - EATING DISORDER [None]
  - EOSINOPHIL PERCENTAGE INCREASED [None]
  - ERYTHEMA MULTIFORME [None]
